FAERS Safety Report 9461912 (Version 1)
Quarter: 2013Q3

REPORT INFORMATION
  Report Type: Report from Study
  Country: US (occurrence: US)
  Receive Date: 20130816
  Receipt Date: 20130816
  Transmission Date: 20140515
  Serious: Yes (Hospitalization)
  Sender: FDA-Public Use
  Company Number: US-ABBOTT-13P-163-1131769-00

PATIENT
  Sex: Female
  Weight: 87.62 kg

DRUGS (7)
  1. HUMIRA [Suspect]
     Indication: PSORIATIC ARTHROPATHY
     Dates: start: 201201, end: 201302
  2. MELOXICAM [Concomitant]
     Indication: PSORIATIC ARTHROPATHY
  3. METHOTREXATE [Concomitant]
     Indication: PSORIATIC ARTHROPATHY
  4. MOBIC [Concomitant]
     Indication: PAIN
  5. FOLIC ACID [Concomitant]
     Indication: VITAMIN SUPPLEMENTATION
  6. LISINOPRIL [Concomitant]
     Indication: HYPERTENSION
  7. LYRICA [Concomitant]
     Indication: PAIN

REACTIONS (1)
  - Arthralgia [Recovered/Resolved]
